FAERS Safety Report 12328947 (Version 2)
Quarter: 2016Q2

REPORT INFORMATION
  Report Type: Spontaneous
  Country: ES (occurrence: ES)
  Receive Date: 20160503
  Receipt Date: 20160519
  Transmission Date: 20160815
  Serious: Yes (Other)
  Sender: FDA-Public Use
  Company Number: ES-AMGEN-ESPSP2016053959

PATIENT
  Age: 70 Year
  Sex: Female

DRUGS (1)
  1. PROLIA [Suspect]
     Active Substance: DENOSUMAB
     Indication: OSTEOPOROSIS POSTMENOPAUSAL
     Dosage: UNK
     Route: 058
     Dates: start: 20150304, end: 20150816

REACTIONS (4)
  - Osteonecrosis of jaw [Recovering/Resolving]
  - Dental cyst [Unknown]
  - Bone lesion [Unknown]
  - Actinomycosis [Unknown]

NARRATIVE: CASE EVENT DATE: 201510
